FAERS Safety Report 9816058 (Version 2)
Quarter: 2014Q4

REPORT INFORMATION
  Report Type: Spontaneous
  Country: FR (occurrence: FR)
  Receive Date: 20140114
  Receipt Date: 20141016
  Transmission Date: 20150529
  Serious: Yes (Life-Threatening, Hospitalization, Other)
  Sender: FDA-Public Use
  Company Number: FR-ELI_LILLY_AND_COMPANY-FR201401002667

PATIENT
  Age: 23 Year
  Sex: Male
  Weight: 110 kg

DRUGS (2)
  1. PARKINANE LP [Concomitant]
     Active Substance: TRIHEXYPHENIDYL HYDROCHLORIDE
     Dosage: 5 MG, QD
     Route: 065
     Dates: end: 20131209
  2. ZYPREXA [Suspect]
     Active Substance: OLANZAPINE
     Indication: PSYCHOTIC DISORDER
     Dosage: 15 MG, QD
     Route: 048
     Dates: end: 20131209

REACTIONS (5)
  - Chest pain [Unknown]
  - Diabetic ketoacidosis [Recovering/Resolving]
  - Syncope [Unknown]
  - Weight decreased [Unknown]
  - Type 2 diabetes mellitus [Recovered/Resolved with Sequelae]

NARRATIVE: CASE EVENT DATE: 20131209
